FAERS Safety Report 14863663 (Version 1)
Quarter: 2018Q2

REPORT INFORMATION
  Report Type: Spontaneous
  Country: US (occurrence: US)
  Receive Date: 20180508
  Receipt Date: 20180508
  Transmission Date: 20180711
  Serious: No
  Sender: FDA-Public Use
  Company Number: US-ALKERMES INC.-ALK-2017-003086

PATIENT
  Age: 24 Year
  Sex: Female

DRUGS (2)
  1. VIVITROL [Suspect]
     Active Substance: NALTREXONE
     Indication: DRUG DEPENDENCE
     Dosage: 380 MG, QMO
     Route: 030
  2. BUPRENORPHINE. [Concomitant]
     Active Substance: BUPRENORPHINE
     Indication: DRUG ABUSE

REACTIONS (7)
  - Antisocial behaviour [Unknown]
  - Feeling abnormal [Unknown]
  - Decreased appetite [Unknown]
  - Drug dependence [Recovered/Resolved]
  - Insomnia [Unknown]
  - Depression [Unknown]
  - Decreased interest [Unknown]
